FAERS Safety Report 4524831-2 (Version None)
Quarter: 2004Q4

REPORT INFORMATION
  Report Type: 
  Country: None (occurrence: None)
  Receive Date: 20041213
  Receipt Date: 20041130
  Transmission Date: 20050328
  Serious: Yes (Death, Other)
  Sender: FDA-Public Use
  Company Number: US-BRISTOL-MYERS SQUIBB COMPANY-12779138

PATIENT
  Age: 74 Year
  Sex: Male
  Weight: 80 kg

DRUGS (4)
  1. CETUXIMAB [Suspect]
     Indication: PANCREATIC CARCINOMA
     Dosage: INITIAL TX DATE: 17-SEP-04. 1932MG IS TOTAL DOSE ADM THIS COURSE.
     Route: 042
     Dates: start: 20041112, end: 20041112
  2. DOCETAXEL [Suspect]
     Indication: PANCREATIC CARCINOMA
     Dosage: INITIAL TX DATE: 17-SEP-04. 136MG TOTAL DOSE ADM THIS COURSE.
     Route: 042
     Dates: start: 20041029, end: 20041029
  3. IRINOTECAN [Suspect]
     Indication: PANCREATIC CARCINOMA
     Dosage: INITIAL TX DATE: 17-SEP-04. 174 MG TOTAL DOSE ADM THIS COURSE.
     Route: 042
     Dates: start: 20041029, end: 20041029
  4. ENOXAPARIN SODIUM [Suspect]
     Indication: PREMEDICATION
     Dosage: TOTAL DOSE ADM THIS COURSE
     Route: 058
     Dates: start: 20041118, end: 20041118

REACTIONS (3)
  - HYPOMAGNESAEMIA [None]
  - MALIGNANT NEOPLASM PROGRESSION [None]
  - PANCREATIC CARCINOMA [None]
